FAERS Safety Report 13143472 (Version 1)
Quarter: 2017Q1

REPORT INFORMATION
  Report Type: Spontaneous
  Country: BR (occurrence: BR)
  Receive Date: 20170124
  Receipt Date: 20170124
  Transmission Date: 20170428
  Serious: Yes (Other)
  Sender: FDA-Public Use
  Company Number: BR-AMGEN-BRASP2012047085

PATIENT
  Age: 26 Year
  Sex: Male
  Weight: 78 kg

DRUGS (5)
  1. ENBREL [Suspect]
     Active Substance: ETANERCEPT
     Dosage: UNK
     Route: 065
  2. CIPROFIBRATE [Concomitant]
     Active Substance: CIPROFIBRATE
     Dosage: UNK
     Dates: start: 201508
  3. SERTRALINE [Concomitant]
     Active Substance: SERTRALINE HYDROCHLORIDE
     Dosage: UNK
     Dates: start: 201507
  4. ENBREL [Suspect]
     Active Substance: ETANERCEPT
     Indication: PSORIATIC ARTHROPATHY
     Dosage: 50 MG, ONCE WEEKLY
     Route: 058
     Dates: start: 201204
  5. DONAREN [Concomitant]
     Active Substance: TRAZODONE HYDROCHLORIDE
     Dosage: UNK
     Dates: start: 201611

REACTIONS (11)
  - Hypometabolism [Not Recovered/Not Resolved]
  - Dyspepsia [Not Recovered/Not Resolved]
  - Pigmentation disorder [Recovered/Resolved]
  - H1N1 influenza [Recovered/Resolved]
  - Influenza [Recovered/Resolved]
  - Pharyngitis [Recovered/Resolved]
  - Circumstance or information capable of leading to medication error [Unknown]
  - Viral infection [Recovered/Resolved]
  - Decreased immune responsiveness [Not Recovered/Not Resolved]
  - Cholelithiasis [Recovered/Resolved]
  - Drug ineffective [Not Recovered/Not Resolved]

NARRATIVE: CASE EVENT DATE: 2012
